FAERS Safety Report 23264788 (Version 1)
Quarter: 2023Q4

REPORT INFORMATION
  Report Type: Spontaneous
  Country: US (occurrence: US)
  Receive Date: 20231206
  Receipt Date: 20231206
  Transmission Date: 20240110
  Serious: Yes (Hospitalization)
  Sender: FDA-Public Use
  Company Number: US-STRIDES ARCOLAB LIMITED-2023SP017968

PATIENT
  Age: 39 Year
  Sex: Female

DRUGS (5)
  1. OLANZAPINE [Suspect]
     Active Substance: OLANZAPINE
     Indication: Bipolar disorder
     Dosage: 15 MILLIGRAM PER DAY
     Route: 065
  2. CLONIDINE [Suspect]
     Active Substance: CLONIDINE
     Indication: Anxiety
     Dosage: 0.6 MILLIGRAM, AT BED TIME TO TREAT NIGHT TIME ANXIETY
     Route: 065
  3. CLONIDINE [Suspect]
     Active Substance: CLONIDINE
     Dosage: UNK (REDUCING HER DOSE BY 50 PERCENT EVERY THREE DAYS)
     Route: 065
  4. BISACODYL [Concomitant]
     Active Substance: BISACODYL
     Indication: Constipation
     Dosage: UNK (6 TABLETS)
     Route: 065
  5. BISACODYL [Concomitant]
     Active Substance: BISACODYL
     Dosage: UNK (20 TABLETS) PER DAY
     Route: 065

REACTIONS (1)
  - Colitis ischaemic [Unknown]
